FAERS Safety Report 20109407 (Version 1)
Quarter: 2021Q4

REPORT INFORMATION
  Report Type: Spontaneous
  Country: US (occurrence: US)
  Receive Date: 20211124
  Receipt Date: 20211124
  Transmission Date: 20220304
  Serious: Yes (Other)
  Sender: FDA-Public Use
  Company Number: US-NOVARTISPH-NVSC2021US264385

PATIENT
  Sex: Male

DRUGS (7)
  1. DOCETAXEL [Suspect]
     Active Substance: DOCETAXEL
     Indication: Adenocarcinoma
     Dosage: 4 CYCLICAL
     Route: 065
     Dates: start: 202010, end: 202101
  2. ABIRATERONE [Suspect]
     Active Substance: ABIRATERONE
     Indication: Adenocarcinoma
     Dosage: UNK
     Route: 065
     Dates: start: 202102, end: 202106
  3. PREDNISONE [Suspect]
     Active Substance: PREDNISONE
     Indication: Adenocarcinoma
     Dosage: UNK
     Route: 065
     Dates: start: 202102, end: 202106
  4. BICALUTAMIDE [Suspect]
     Active Substance: BICALUTAMIDE
     Indication: Adenocarcinoma
     Dosage: UNK
     Route: 065
     Dates: start: 20171030, end: 20171228
  5. ENZALUTAMIDE [Suspect]
     Active Substance: ENZALUTAMIDE
     Indication: Adenocarcinoma
     Dosage: UNK
     Route: 065
     Dates: start: 201908, end: 202010
  6. ENZALUTAMIDE [Suspect]
     Active Substance: ENZALUTAMIDE
     Dosage: UNK
     Route: 065
     Dates: start: 202010
  7. CABAZITAXEL [Suspect]
     Active Substance: CABAZITAXEL
     Indication: Adenocarcinoma
     Dosage: UNK
     Route: 065
     Dates: start: 202106, end: 202109

REACTIONS (5)
  - Lymphadenopathy mediastinal [Unknown]
  - Metastases to bone [Unknown]
  - Malignant neoplasm progression [Unknown]
  - Psychotic disorder [Unknown]
  - Fatigue [Unknown]
